FAERS Safety Report 14342760 (Version 1)
Quarter: 2018Q1

REPORT INFORMATION
  Report Type: Spontaneous
  Country: NL (occurrence: NL)
  Receive Date: 20180102
  Receipt Date: 20180102
  Transmission Date: 20180509
  Serious: Yes (Other)
  Sender: FDA-Public Use
  Company Number: NL-IPSEN BIOPHARMACEUTICALS, INC.-2017-16275

PATIENT

DRUGS (7)
  1. OCTREOTIDE. [Concomitant]
     Active Substance: OCTREOTIDE
  2. LANREOTIDE [Suspect]
     Active Substance: LANREOTIDE
     Indication: HYPERINSULINISM
     Dosage: 30 - 60 MG
     Route: 065
  3. LANREOTIDE [Suspect]
     Active Substance: LANREOTIDE
     Indication: OFF LABEL USE
  4. MIDAZOLAM [Concomitant]
     Active Substance: MIDAZOLAM HYDROCHLORIDE
  5. PARACETAMOL [Concomitant]
     Active Substance: ACETAMINOPHEN
  6. NIFEDIPINE. [Concomitant]
     Active Substance: NIFEDIPINE
  7. DIAZOXIDE [Concomitant]
     Active Substance: DIAZOXIDE

REACTIONS (3)
  - Drug ineffective for unapproved indication [Unknown]
  - Injection site abscess [Unknown]
  - Off label use [Unknown]
